FAERS Safety Report 13321369 (Version 2)
Quarter: 2018Q1

REPORT INFORMATION
  Report Type: Report from Study
  Country: BR (occurrence: BR)
  Receive Date: 20170309
  Receipt Date: 20180213
  Transmission Date: 20180508
  Serious: Yes (Death, Hospitalization, Other)
  Sender: FDA-Public Use
  Company Number: PHHY2014BR149659

PATIENT
  Age: 84 Year
  Sex: Female
  Weight: 50 kg

DRUGS (4)
  1. DONAREN [Concomitant]
     Active Substance: TRAZODONE HYDROCHLORIDE
     Indication: SLEEP DISORDER
     Dosage: 1 DF (TABLET), QD
     Route: 048
  2. RIVASTIGMINE. [Suspect]
     Active Substance: RIVASTIGMINE
     Indication: DEMENTIA ALZHEIMER^S TYPE
     Dosage: 1 DF, BID (ONE IN THE MORNING AND ONE AT NIGHT)
     Route: 048
  3. EXELON PATCH [Suspect]
     Active Substance: RIVASTIGMINE
     Indication: DEMENTIA ALZHEIMER^S TYPE
     Dosage: 9.5 MG, QD PATCH 10 (CM2)
     Route: 062
  4. DONAREN [Concomitant]
     Active Substance: TRAZODONE HYDROCHLORIDE
     Indication: SEDATIVE THERAPY

REACTIONS (9)
  - Death [Fatal]
  - Thrombosis [Not Recovered/Not Resolved]
  - Aggression [Not Recovered/Not Resolved]
  - Amnesia [Not Recovered/Not Resolved]
  - Drug ineffective [Unknown]
  - Syncope [Recovered/Resolved]
  - Sedation complication [Not Recovered/Not Resolved]
  - Haemorrhagic stroke [Not Recovered/Not Resolved]
  - Loss of consciousness [Recovered/Resolved]

NARRATIVE: CASE EVENT DATE: 20131221
